FAERS Safety Report 6394845-9 (Version None)
Quarter: 2009Q4

REPORT INFORMATION
  Report Type: 
  Country: None (occurrence: None)
  Receive Date: 20091009
  Receipt Date: 20090605
  Transmission Date: 20100525
  Serious: Yes (Death, Life-Threatening, Hospitalization, Other)
  Sender: FDA-Public Use
  Company Number: US-BAYER-PL-2005-014716

PATIENT
  Age: 44 Year
  Sex: Male
  Weight: 74 kg

DRUGS (24)
  1. CAMPATH [Suspect]
     Indication: CHRONIC LYMPHOCYTIC LEUKAEMIA
     Route: 042
     Dates: start: 20050615, end: 20050617
  2. CAMPATH [Suspect]
     Route: 042
     Dates: start: 20050512, end: 20050514
  3. CAMPATH [Suspect]
     Route: 042
     Dates: start: 20050317, end: 20050319
  4. CAMPATH [Suspect]
     Route: 042
     Dates: start: 20050415, end: 20050417
  5. CAMPATH [Suspect]
     Route: 042
     Dates: start: 20050119, end: 20050119
  6. CAMPATH [Suspect]
     Route: 042
     Dates: start: 20050117, end: 20050117
  7. CAMPATH [Suspect]
     Route: 042
     Dates: start: 20050118, end: 20050118
  8. CAMPATH [Suspect]
     Route: 042
     Dates: start: 20050120, end: 20050122
  9. CAMPATH [Suspect]
     Route: 042
     Dates: start: 20050217, end: 20050219
  10. FLUDARABINE PHOSPHATE [Suspect]
     Indication: CHRONIC LYMPHOCYTIC LEUKAEMIA
     Route: 042
     Dates: start: 20050615, end: 20050617
  11. FLUDARABINE PHOSPHATE [Suspect]
     Route: 042
     Dates: start: 20050512, end: 20050514
  12. FLUDARABINE PHOSPHATE [Suspect]
     Route: 042
     Dates: start: 20050120, end: 20050122
  13. FLUDARABINE PHOSPHATE [Suspect]
     Route: 042
     Dates: start: 20050217, end: 20050219
  14. FLUDARABINE PHOSPHATE [Suspect]
     Route: 042
     Dates: start: 20050317, end: 20050319
  15. FLUDARABINE PHOSPHATE [Suspect]
     Route: 042
     Dates: start: 20050415, end: 20050417
  16. RIFAMPICIN [Concomitant]
     Indication: TUBERCULOSIS
     Route: 048
     Dates: start: 20050707
  17. VITAMIN B6 [Concomitant]
     Indication: TUBERCULOSIS
     Route: 048
     Dates: start: 20050707
  18. FUROSEMIDE [Concomitant]
     Indication: OEDEMA
     Route: 042
     Dates: start: 20050711
  19. VFEND [Concomitant]
     Indication: FUNGAL INFECTION
     Route: 042
     Dates: start: 20050712
  20. MERONEM [Concomitant]
     Indication: INFECTION
     Route: 042
     Dates: start: 20050702
  21. ALBUMIN (HUMAN) [Concomitant]
     Indication: HYPOPROTEINAEMIA
     Dosage: 100 ML, UNK
     Route: 042
     Dates: start: 20050712
  22. NITROGLYCERIN [Concomitant]
     Indication: HYPERTONIA
     Route: 042
     Dates: start: 20050718
  23. KABIVEN [Concomitant]
     Indication: PARENTERAL NUTRITION
     Route: 042
     Dates: start: 20050712
  24. SOLU-MEDROL [Concomitant]
     Indication: CHRONIC LYMPHOCYTIC LEUKAEMIA
     Dosage: 1000 MG, UNK
     Route: 042
     Dates: start: 20050714

REACTIONS (9)
  - COMA HEPATIC [None]
  - FEBRILE NEUTROPENIA [None]
  - HEPATOTOXICITY [None]
  - HODGKIN'S DISEASE [None]
  - HYPOKALAEMIA [None]
  - LEUKOPENIA [None]
  - PANCYTOPENIA [None]
  - PNEUMONIA [None]
  - VOMITING [None]
